FAERS Safety Report 10412991 (Version 5)
Quarter: 2015Q2

REPORT INFORMATION
  Report Type: Report from Study
  Country: US (occurrence: US)
  Receive Date: 20140827
  Receipt Date: 20150406
  Transmission Date: 20150821
  Serious: Yes (Life-Threatening, Other)
  Sender: FDA-Public Use
  Company Number: US-JNJFOC-20140823660

PATIENT
  Age: 78 Year
  Sex: Male

DRUGS (2)
  1. HUMAN CLOTTABLE PROTEIN/HUMAN THROMBIN [Suspect]
     Active Substance: FIBRINOGEN HUMAN\THROMBIN HUMAN
     Indication: AORTIC SURGERY
     Route: 065
     Dates: start: 20140818, end: 20140818
  2. HUMAN CLOTTABLE PROTEIN/HUMAN THROMBIN [Suspect]
     Active Substance: FIBRINOGEN HUMAN\THROMBIN HUMAN
     Route: 065

REACTIONS (1)
  - Anastomotic haemorrhage [Recovered/Resolved]

NARRATIVE: CASE EVENT DATE: 20140819
